FAERS Safety Report 15675110 (Version 1)
Quarter: 2018Q4

REPORT INFORMATION
  Report Type: Spontaneous
  Country: US (occurrence: US)
  Receive Date: 20181130
  Receipt Date: 20181130
  Transmission Date: 20190205
  Serious: No
  Sender: FDA-Public Use
  Company Number: US-PFIZER INC-2018431488

PATIENT
  Age: 71 Year
  Sex: Female

DRUGS (4)
  1. VFEND [Suspect]
     Active Substance: VORICONAZOLE
     Indication: HISTOPLASMOSIS
     Dosage: 200 MG, 3X/DAY
     Route: 048
  2. VFEND [Suspect]
     Active Substance: VORICONAZOLE
     Dosage: 1 DF, 2X/DAY [1 BID THEREAFTER]
     Route: 048
     Dates: start: 20181015, end: 20181025
  3. VFEND [Suspect]
     Active Substance: VORICONAZOLE
     Dosage: 200 MG, 2X/DAY (THEN 1 TABLET 2 TIMES IN A DAY)
  4. VFEND [Suspect]
     Active Substance: VORICONAZOLE
     Dosage: 1 DF, 3X/DAY [1 TID X 3D]
     Route: 048
     Dates: start: 20181015, end: 20181025

REACTIONS (2)
  - Visual impairment [Unknown]
  - Product use in unapproved indication [Unknown]

NARRATIVE: CASE EVENT DATE: 20181015
